FAERS Safety Report 24031608 (Version 1)
Quarter: 2024Q2

REPORT INFORMATION
  Report Type: Spontaneous
  Country: FR (occurrence: FR)
  Receive Date: 20240629
  Receipt Date: 20240629
  Transmission Date: 20240715
  Serious: Yes (Other)
  Sender: FDA-Public Use
  Company Number: FR-MYLANLABS-2024M1053653

PATIENT
  Age: 33 Year
  Sex: Female

DRUGS (1)
  1. TRAMADOL [Suspect]
     Active Substance: TRAMADOL\TRAMADOL HYDROCHLORIDE
     Indication: Facial pain
     Dosage: UNK
     Route: 065
     Dates: end: 202403

REACTIONS (2)
  - Drug dependence [Unknown]
  - Maternal exposure during pregnancy [Unknown]
